FAERS Safety Report 18504451 (Version 1)
Quarter: 2020Q4

REPORT INFORMATION
  Report Type: Spontaneous
  Country: US (occurrence: US)
  Receive Date: 20201113
  Receipt Date: 20201113
  Transmission Date: 20210114
  Serious: Yes (Hospitalization, Other)
  Sender: FDA-Public Use
  Company Number: US-VISTAPHARM, INC.-VER202011-001983

PATIENT

DRUGS (4)
  1. DIGOXIN. [Suspect]
     Active Substance: DIGOXIN
     Indication: FOETAL ARRHYTHMIA
     Dosage: UNKNOWN
     Route: 064
  2. BETAMETHASONE. [Concomitant]
     Active Substance: BETAMETHASONE
     Indication: FOETAL GROWTH RESTRICTION
     Dosage: UNKNOWN
  3. FLECAINIDE [Suspect]
     Active Substance: FLECAINIDE
     Indication: FOETAL ARRHYTHMIA
     Dosage: UNKNOWN
  4. URSODIOL. [Concomitant]
     Active Substance: URSODIOL
     Indication: FOETAL ARRHYTHMIA
     Dosage: UNKNOWN

REACTIONS (5)
  - Respiratory distress [Unknown]
  - Meconium aspiration syndrome [Unknown]
  - Tachypnoea [Unknown]
  - Right ventricular hypertrophy [Unknown]
  - Foetal exposure during pregnancy [Unknown]
